FAERS Safety Report 6033502-5 (Version None)
Quarter: 2009Q1

REPORT INFORMATION
  Report Type: 
  Country: None (occurrence: None)
  Receive Date: 20090109
  Receipt Date: 20090106
  Transmission Date: 20090719
  Serious: Yes (Other)
  Sender: FDA-Public Use
  Company Number: CH-B.I. PHARMACEUTICALS,INC./RIDGEFIELD-2008-DE-07514GD

PATIENT
  Age: 59 Year
  Sex: Male

DRUGS (4)
  1. SIFROL [Suspect]
     Indication: PARKINSON'S DISEASE
     Dosage: 1.5MG
  2. SIFROL [Suspect]
     Dosage: 3MG
  3. SINEMET [Suspect]
     Indication: PARKINSON'S DISEASE
     Dosage: 375MG
  4. SINEMET [Suspect]
     Dosage: 750MG

REACTIONS (5)
  - DYSPNOEA EXERTIONAL [None]
  - HYPERPHAGIA [None]
  - OBSESSIVE-COMPULSIVE PERSONALITY DISORDER [None]
  - PARKINSON'S DISEASE [None]
  - WEIGHT INCREASED [None]
